FAERS Safety Report 7303879-9 (Version None)
Quarter: 2011Q1

REPORT INFORMATION
  Report Type: 
  Country: None (occurrence: None)
  Receive Date: 20110221
  Receipt Date: 20110211
  Transmission Date: 20110831
  Serious: Yes (Hospitalization)
  Sender: FDA-Public Use
  Company Number: B0699405A

PATIENT
  Sex: Male
  Weight: 3.2 kg

DRUGS (7)
  1. RETROVIR [Suspect]
     Indication: ANTIVIRAL PROPHYLAXIS
     Dosage: 2MGK PER DAY
     Route: 042
     Dates: start: 20100112, end: 20100120
  2. ISENTRESS [Suspect]
     Indication: HIV INFECTION
     Dosage: 800MG PER DAY
     Route: 064
     Dates: start: 20090427, end: 20100112
  3. RETROVIR [Suspect]
     Route: 064
     Dates: start: 20100112, end: 20100112
  4. INTELENCE [Suspect]
     Indication: HIV INFECTION
     Dosage: 200MG TWICE PER DAY
     Route: 064
     Dates: start: 20090427, end: 20100112
  5. NORVIR [Suspect]
     Indication: HIV INFECTION
     Dosage: 2UNIT PER DAY
     Route: 064
     Dates: start: 20090427, end: 20100112
  6. FUZEON [Suspect]
     Indication: HIV INFECTION
     Dosage: 2UNIT PER DAY
     Route: 064
     Dates: start: 20090427, end: 20100112
  7. PREZISTA [Suspect]
     Indication: HIV INFECTION
     Dosage: 600MG TWICE PER DAY
     Route: 064
     Dates: start: 20090427, end: 20100112

REACTIONS (2)
  - THROMBOCYTOPENIA [None]
  - DRUG EXPOSURE DURING PREGNANCY [None]
